FAERS Safety Report 10110843 (Version 1)
Quarter: 2014Q2

REPORT INFORMATION
  Report Type: Spontaneous
  Country: US (occurrence: US)
  Receive Date: 20140425
  Receipt Date: 20140425
  Transmission Date: 20141212
  Serious: Yes (Hospitalization)
  Sender: FDA-Public Use
  Company Number: US-BAYER-2014-059636

PATIENT
  Age: 30 Year
  Sex: Female
  Weight: 91.61 kg

DRUGS (4)
  1. YAZ [Suspect]
  2. YASMIN [Suspect]
  3. ALLEGRA [Concomitant]
     Dosage: 60 MG, UNK
     Dates: start: 20070628
  4. PROZAC [Concomitant]
     Dosage: DAILY
     Dates: start: 20070830

REACTIONS (1)
  - Pulmonary embolism [Recovered/Resolved]
